FAERS Safety Report 9460716 (Version 1)
Quarter: 2013Q3

REPORT INFORMATION
  Report Type: Spontaneous
  Country: FR (occurrence: None)
  Receive Date: 20130813
  Receipt Date: 20130813
  Transmission Date: 20140515
  Serious: Yes (Other)
  Sender: FDA-Public Use
  Company Number: 1837792

PATIENT
  Age: 57 Year
  Sex: Female

DRUGS (9)
  1. OXALIPLATIN [Suspect]
     Dosage: 130 MG 1 CYCLICAL , INTRAVENOUS
     Route: 042
     Dates: start: 20130521, end: 20130521
  2. LEVOFOLINTE CALCIUM [Concomitant]
  3. TOLEXINE [Concomitant]
  4. SODIUM BICARBONATE [Concomitant]
  5. KYTRIL [Concomitant]
  6. SOLUMEDROL [Concomitant]
  7. GLUCOSE [Concomitant]
  8. CALCIUM GLUCONATE [Concomitant]
  9. MAGNESIUM SULFATE [Concomitant]

REACTIONS (6)
  - Dysphagia [None]
  - Hypotension [None]
  - Malaise [None]
  - Paraesthesia mucosal [None]
  - Laryngeal discomfort [None]
  - Infusion related reaction [None]
